FAERS Safety Report 21094400 (Version 1)
Quarter: 2022Q3

REPORT INFORMATION
  Report Type: Spontaneous
  Country: FR (occurrence: FR)
  Receive Date: 20220718
  Receipt Date: 20220718
  Transmission Date: 20221027
  Serious: Yes (Death, Other)
  Sender: FDA-Public Use
  Company Number: None

PATIENT
  Age: 83 Year
  Sex: Male

DRUGS (2)
  1. VYNDAQEL [Suspect]
     Active Substance: TAFAMIDIS MEGLUMINE
     Indication: Amyloidosis senile
     Dosage: 80 MG, 1X/DAY
     Route: 048
     Dates: start: 202103, end: 202104
  2. ESIDREX [Suspect]
     Active Substance: HYDROCHLOROTHIAZIDE
     Dosage: 25 MG, 1X/DAY
     Route: 048
     Dates: start: 202103, end: 20210422

REACTIONS (3)
  - Tubulointerstitial nephritis [Fatal]
  - Dermatitis exfoliative generalised [Fatal]
  - Off label use [Unknown]

NARRATIVE: CASE EVENT DATE: 20210301
